FAERS Safety Report 14160378 (Version 1)
Quarter: 2017Q4

REPORT INFORMATION
  Report Type: Spontaneous
  Country: US (occurrence: US)
  Receive Date: 20171106
  Receipt Date: 20171106
  Transmission Date: 20180321
  Serious: No
  Sender: FDA-Public Use
  Company Number: US-JNJFOC-20170926864

PATIENT
  Age: 66 Year
  Sex: Male
  Weight: 175 kg

DRUGS (26)
  1. KADIAN [Concomitant]
     Active Substance: MORPHINE SULFATE
     Route: 065
  2. TESTOSTERONE. [Concomitant]
     Active Substance: TESTOSTERONE
     Route: 065
  3. DICLOFENAC EPOLAMINE [Concomitant]
     Active Substance: DICLOFENAC EPOLAMINE
     Route: 065
  4. MONTELUKAST [Concomitant]
     Active Substance: MONTELUKAST SODIUM
     Route: 065
  5. CONCERTA [Suspect]
     Active Substance: METHYLPHENIDATE HYDROCHLORIDE
     Indication: PRODUCT USED FOR UNKNOWN INDICATION
     Route: 048
     Dates: start: 2017
  6. PROCHLORPERAZIN [Concomitant]
     Active Substance: PROCHLORPERAZINE
     Route: 065
  7. GEMFIBROZIL. [Concomitant]
     Active Substance: GEMFIBROZIL
     Route: 065
  8. MORPHINE SULFATE. [Concomitant]
     Active Substance: MORPHINE SULFATE
     Route: 065
  9. AMRIX [Concomitant]
     Active Substance: CYCLOBENZAPRINE HYDROCHLORIDE
     Route: 065
  10. VALIUM [Concomitant]
     Active Substance: DIAZEPAM
     Route: 065
  11. PREVACID [Concomitant]
     Active Substance: LANSOPRAZOLE
     Indication: GASTROOESOPHAGEAL REFLUX DISEASE
     Route: 065
  12. FLUTICASONE PROPIONATE. [Concomitant]
     Active Substance: FLUTICASONE PROPIONATE
     Route: 065
  13. FOLIC ACID. [Concomitant]
     Active Substance: FOLIC ACID
     Route: 065
  14. VITAMIN B12 [Concomitant]
     Active Substance: CYANOCOBALAMIN
     Route: 065
  15. TOPAMAX [Concomitant]
     Active Substance: TOPIRAMATE
     Route: 065
  16. RELISTOR [Concomitant]
     Active Substance: METHYLNALTREXONE BROMIDE
     Indication: CONSTIPATION
     Route: 065
  17. NUVIGIL [Concomitant]
     Active Substance: ARMODAFINIL
     Route: 065
  18. PILOCARPINE. [Concomitant]
     Active Substance: PILOCARPINE
     Route: 065
  19. NEURONTIN [Concomitant]
     Active Substance: GABAPENTIN
     Route: 065
  20. XYZAL [Concomitant]
     Active Substance: LEVOCETIRIZINE DIHYDROCHLORIDE
     Indication: HYPERSENSITIVITY
     Route: 065
  21. VITAMINE C [Concomitant]
     Active Substance: ASCORBIC ACID
     Route: 065
  22. CONCERTA [Suspect]
     Active Substance: METHYLPHENIDATE HYDROCHLORIDE
     Indication: PRODUCT USED FOR UNKNOWN INDICATION
     Route: 048
     Dates: start: 2004, end: 2017
  23. LIDOCAINE. [Concomitant]
     Active Substance: LIDOCAINE
     Route: 065
  24. KLONOPIN [Concomitant]
     Active Substance: CLONAZEPAM
     Indication: ANXIETY
     Route: 065
  25. LIPITOR [Concomitant]
     Active Substance: ATORVASTATIN CALCIUM
     Route: 065
  26. VITAMINE D [Concomitant]
     Route: 065

REACTIONS (6)
  - Insomnia [Not Recovered/Not Resolved]
  - Headache [Not Recovered/Not Resolved]
  - Vasodilatation [Not Recovered/Not Resolved]
  - Fall [Not Recovered/Not Resolved]
  - Clumsiness [Not Recovered/Not Resolved]
  - Pruritus [Recovered/Resolved]

NARRATIVE: CASE EVENT DATE: 201708
